FAERS Safety Report 14480227 (Version 1)
Quarter: 2018Q1

REPORT INFORMATION
  Report Type: Spontaneous
  Country: US (occurrence: US)
  Receive Date: 20180201
  Receipt Date: 20180201
  Transmission Date: 20180509
  Serious: Yes (Hospitalization)
  Sender: FDA-Public Use
  Company Number: None

PATIENT
  Age: 49 Year
  Sex: Female
  Weight: 84.4 kg

DRUGS (3)
  1. METFORMIN HYDROCHLORIDE. [Concomitant]
     Active Substance: METFORMIN HYDROCHLORIDE
     Dates: end: 20180101
  2. CARBOPLATIN. [Suspect]
     Active Substance: CARBOPLATIN
     Dates: end: 20171205
  3. TAXOL [Concomitant]
     Active Substance: PACLITAXEL
     Dates: end: 20171205

REACTIONS (5)
  - Vaginal haemorrhage [None]
  - Epistaxis [None]
  - Deep vein thrombosis [None]
  - Haemoptysis [None]
  - Chest discomfort [None]

NARRATIVE: CASE EVENT DATE: 20180102
